FAERS Safety Report 21331457 (Version 2)
Quarter: 2022Q3

REPORT INFORMATION
  Report Type: Spontaneous
  Country: US (occurrence: None)
  Receive Date: 20220914
  Receipt Date: 20220923
  Transmission Date: 20221026
  Serious: Yes (Hospitalization, Other)
  Sender: FDA-Public Use
  Company Number: US-MLMSERVICE-20220826-3759775-1

PATIENT
  Age: 21 Year
  Sex: Female

DRUGS (12)
  1. AZATHIOPRINE [Suspect]
     Active Substance: AZATHIOPRINE
     Indication: Systemic lupus erythematosus
     Route: 065
  2. AZATHIOPRINE [Suspect]
     Active Substance: AZATHIOPRINE
     Route: 065
  3. PREDNISONE [Concomitant]
     Active Substance: PREDNISONE
     Indication: Systemic lupus erythematosus
     Route: 048
  4. PREDNISONE [Concomitant]
     Active Substance: PREDNISONE
     Route: 048
  5. PREDNISONE [Concomitant]
     Active Substance: PREDNISONE
     Route: 048
  6. PREDNISONE [Concomitant]
     Active Substance: PREDNISONE
     Route: 048
  7. PREDNISONE [Concomitant]
     Active Substance: PREDNISONE
     Route: 048
  8. PREDNISONE [Concomitant]
     Active Substance: PREDNISONE
     Route: 048
  9. PREDNISONE [Concomitant]
     Active Substance: PREDNISONE
     Route: 048
  10. PREDNISONE [Concomitant]
     Active Substance: PREDNISONE
     Route: 048
  11. HYDROXYCHLOROQUINE [Concomitant]
     Active Substance: HYDROXYCHLOROQUINE
     Indication: Systemic lupus erythematosus
     Route: 065
  12. HYDROXYCHLOROQUINE [Concomitant]
     Active Substance: HYDROXYCHLOROQUINE
     Route: 065

REACTIONS (6)
  - Drug reaction with eosinophilia and systemic symptoms [Recovered/Resolved]
  - Hypersensitivity [Recovered/Resolved]
  - Hepatic function abnormal [Recovered/Resolved]
  - Pancytopenia [Recovered/Resolved]
  - Hypotension [Recovered/Resolved]
  - Vomiting [Recovered/Resolved]
